FAERS Safety Report 18037978 (Version 1)
Quarter: 2020Q3

REPORT INFORMATION
  Report Type: Report from Study
  Country: CH (occurrence: CH)
  Receive Date: 20200717
  Receipt Date: 20200717
  Transmission Date: 20201103
  Serious: Yes (Hospitalization)
  Sender: FDA-Public Use
  Company Number: CH-ROCHE-2398221

PATIENT
  Age: 66 Year
  Sex: Male

DRUGS (6)
  1. DOCETAXEL. [Suspect]
     Active Substance: DOCETAXEL
     Indication: HER2 POSITIVE GASTRIC CANCER
     Dosage: MOST RECENT DOSE OF DOCETAXEL PRIOR TO SAE: 16/AUG/2019
     Route: 042
     Dates: start: 20190402
  2. OXALIPLATIN. [Suspect]
     Active Substance: OXALIPLATIN
     Indication: HER2 POSITIVE GASTRIC CANCER
     Dosage: TWICE DAILY ON DAY 1?15 IN 3 WEEKLY SCHEDULE?MOST RECENT DOSE OF OXALIPLATIN PRIOR TO SAE: 16/AUG/20
     Route: 042
     Dates: start: 20190402
  3. FLUOROURACIL. [Suspect]
     Active Substance: FLUOROURACIL
     Indication: HER2 POSITIVE GASTRIC CANCER
     Dosage: ON DAY 1?5 IN 3 WEEKLY AND LATER ONCE IN 2 WEEKS.?MOST RECENT DOSE OF FLUOROURACIL PRIOR TO SAE: 16/
     Route: 042
     Dates: start: 20190402
  4. VALSARTAN. [Concomitant]
     Active Substance: VALSARTAN
     Indication: HYPERTENSION
     Route: 048
  5. TRASTUZUMAB. [Suspect]
     Active Substance: TRASTUZUMAB
     Indication: HER2 POSITIVE GASTRIC CANCER
     Dosage: MOST RECENT DOSE OF TRASTUZUMAB PRIOR TO SAE: 22/AUG/2019
     Route: 042
     Dates: start: 20190312
  6. LEUCOVORIN. [Suspect]
     Active Substance: LEUCOVORIN
     Indication: HER2 POSITIVE GASTRIC CANCER
     Dosage: MOST RECENT DOSE OF LEUCOVORIN PRIOR TO SAE: 16/AUG/2019
     Route: 042
     Dates: start: 20190402

REACTIONS (2)
  - Dehydration [Recovered/Resolved]
  - Acute kidney injury [Recovered/Resolved]

NARRATIVE: CASE EVENT DATE: 20190828
